FAERS Safety Report 22336852 (Version 1)
Quarter: 2023Q2

REPORT INFORMATION
  Report Type: Spontaneous
  Country: US (occurrence: US)
  Receive Date: 20230518
  Receipt Date: 20230518
  Transmission Date: 20230722
  Serious: No
  Sender: FDA-Public Use
  Company Number: US-TAKEDA-2023TUS049304

PATIENT
  Age: 65 Year
  Sex: Female

DRUGS (3)
  1. TRINTELLIX [Suspect]
     Active Substance: VORTIOXETINE HYDROBROMIDE
     Indication: Product used for unknown indication
     Dosage: 20 MILLIGRAM
     Route: 065
     Dates: end: 20230512
  2. BELSOMRA [Concomitant]
     Active Substance: SUVOREXANT
     Indication: Sleep disorder
     Dosage: UNK
  3. LORAZEPAM [Concomitant]
     Active Substance: LORAZEPAM
     Dosage: UNK

REACTIONS (15)
  - Product use issue [Unknown]
  - Crying [Unknown]
  - Vertigo [Unknown]
  - Tremor [Unknown]
  - Anxiety [Unknown]
  - Insomnia [Unknown]
  - Palpitations [Unknown]
  - Cardiac disorder [Unknown]
  - Balance disorder [Unknown]
  - Migraine [Unknown]
  - Irritability [Unknown]
  - Vomiting [Unknown]
  - Dizziness [Unknown]
  - Headache [Unknown]
  - Agitation [Unknown]

NARRATIVE: CASE EVENT DATE: 20230512
